FAERS Safety Report 22302451 (Version 1)
Quarter: 2023Q2

REPORT INFORMATION
  Report Type: Spontaneous
  Country: US (occurrence: US)
  Receive Date: 20230510
  Receipt Date: 20230510
  Transmission Date: 20230721
  Serious: No
  Sender: FDA-Public Use
  Company Number: US-BIOGEN-2022BI01161008

PATIENT
  Sex: Female

DRUGS (16)
  1. VUMERITY [Suspect]
     Active Substance: DIROXIMEL FUMARATE
     Indication: Multiple sclerosis
     Dosage: TAKE 2 CAPSULES (462MG) BY MOUTH TWICE DAILY
     Route: 050
  2. AMBIEN [Concomitant]
     Active Substance: ZOLPIDEM TARTRATE
     Route: 050
  3. XANAX [Concomitant]
     Active Substance: ALPRAZOLAM
     Route: 050
  4. AMITRIPTYLINE HYDROCHLORIDE [Concomitant]
     Active Substance: AMITRIPTYLINE HYDROCHLORIDE
     Route: 050
  5. AMLODIPINE BESYLATE [Concomitant]
     Active Substance: AMLODIPINE BESYLATE
     Route: 050
  6. CLONIDINE HYDROCHLORIDE [Concomitant]
     Active Substance: CLONIDINE HYDROCHLORIDE
     Route: 050
  7. LASIX [Concomitant]
     Active Substance: FUROSEMIDE
     Route: 050
  8. GABAPENTIN [Concomitant]
     Active Substance: GABAPENTIN
     Route: 050
  9. EMGALITY [Concomitant]
     Active Substance: GALCANEZUMAB-GNLM
     Route: 050
  10. ZOFRAN [Concomitant]
     Active Substance: ONDANSETRON HYDROCHLORIDE
     Route: 050
  11. PROGESTERONE [Concomitant]
     Active Substance: PROGESTERONE
     Dosage: PROGESTERONE HORMONE CREAM BASE NIOSOM
     Route: 050
  12. NURTEC ODT [Concomitant]
     Active Substance: RIMEGEPANT SULFATE
     Route: 050
  13. SUCROSE [Concomitant]
     Active Substance: SUCROSE
     Route: 050
  14. TOPAMAX [Concomitant]
     Active Substance: TOPIRAMATE
     Route: 050
  15. PROTONIX [Concomitant]
     Active Substance: PANTOPRAZOLE SODIUM
     Route: 050
  16. BOTOX [Concomitant]
     Active Substance: ONABOTULINUMTOXINA
     Route: 050

REACTIONS (1)
  - Autoimmune thyroiditis [Unknown]
